FAERS Safety Report 17272734 (Version 2)
Quarter: 2020Q1

REPORT INFORMATION
  Report Type: Spontaneous
  Country: PT (occurrence: PT)
  Receive Date: 20200115
  Receipt Date: 20200229
  Transmission Date: 20200409
  Serious: Yes (Death, Other)
  Sender: FDA-Public Use
  Company Number: PT-AMGEN-PRTSP2020004667

PATIENT
  Age: 19 Year
  Sex: Male
  Weight: 65 kg

DRUGS (4)
  1. BLINCYTO [Suspect]
     Active Substance: BLINATUMOMAB
     Indication: ACUTE LYMPHOCYTIC LEUKAEMIA RECURRENT
     Dosage: 28 MICROGRAM, QD
     Route: 042
     Dates: start: 20191029
  2. FLUCONAZOLE. [Concomitant]
     Active Substance: FLUCONAZOLE
     Indication: PROPHYLAXIS
     Dosage: 200 MILLIGRAM, QD
     Dates: start: 20190615, end: 20191212
  3. BLINCYTO [Suspect]
     Active Substance: BLINATUMOMAB
     Dosage: 28 MICROGRAM, QD
     Route: 042
     Dates: start: 20191210, end: 20191213
  4. COLCHICINE. [Concomitant]
     Active Substance: COLCHICINE
     Indication: ARTHRITIS
     Dosage: 1 MILLIGRAM, 8/8H
     Dates: start: 20191104, end: 20191212

REACTIONS (7)
  - Septic shock [Fatal]
  - Blood bilirubin increased [Recovered/Resolved]
  - Hepatotoxicity [Unknown]
  - Cytokine release syndrome [Recovered/Resolved]
  - Aspartate aminotransferase increased [Not Recovered/Not Resolved]
  - Abdominal pain [Recovered/Resolved]
  - Alanine aminotransferase increased [Not Recovered/Not Resolved]

NARRATIVE: CASE EVENT DATE: 20191031
